FAERS Safety Report 10274768 (Version 1)
Quarter: 2014Q3

REPORT INFORMATION
  Report Type: Spontaneous
  Country: US (occurrence: US)
  Receive Date: 20140702
  Receipt Date: 20140702
  Transmission Date: 20150326
  Serious: No
  Sender: FDA-Public Use
  Company Number: US-TEVA-491089USA

PATIENT
  Age: 28 Year
  Sex: Female

DRUGS (2)
  1. COPAXONE [Suspect]
     Active Substance: GLATIRAMER ACETATE
     Indication: MULTIPLE SCLEROSIS
     Dates: start: 20130913
  2. COPAXONE [Suspect]
     Active Substance: GLATIRAMER ACETATE
     Dates: start: 20140625

REACTIONS (1)
  - Urticaria [Recovered/Resolved]

NARRATIVE: CASE EVENT DATE: 20140623
